FAERS Safety Report 20510304 (Version 3)
Quarter: 2022Q2

REPORT INFORMATION
  Report Type: Spontaneous
  Country: CA (occurrence: CA)
  Receive Date: 20220224
  Receipt Date: 20220617
  Transmission Date: 20220721
  Serious: Yes (Hospitalization, Other)
  Sender: FDA-Public Use
  Company Number: CA-PFIZER INC-202200229087

PATIENT
  Age: 69 Year
  Sex: Female

DRUGS (1)
  1. PREMARIN [Suspect]
     Active Substance: ESTROGENS, CONJUGATED
     Indication: Uterine disorder
     Dosage: UNK
     Dates: start: 20220201

REACTIONS (6)
  - Urinary tract infection [Recovered/Resolved]
  - Haematuria [Recovered/Resolved]
  - Dysuria [Unknown]
  - Chromaturia [Unknown]
  - Urine abnormality [Recovered/Resolved]
  - Off label use [Unknown]

NARRATIVE: CASE EVENT DATE: 20220201
